FAERS Safety Report 5599942-3 (Version None)
Quarter: 2008Q1

REPORT INFORMATION
  Report Type: 
  Country: None (occurrence: None)
  Receive Date: 20080123
  Receipt Date: 20080108
  Transmission Date: 20080703
  Serious: Yes (Hospitalization, Other)
  Sender: FDA-Public Use
  Company Number: FR-GENENTECH-252230

PATIENT
  Sex: Female
  Weight: 72 kg

DRUGS (3)
  1. XOLAIR [Suspect]
     Indication: ASTHMA
     Dosage: 150 MG, SINGLE
     Route: 058
     Dates: start: 20071114
  2. XOLAIR [Suspect]
     Dosage: 150 MG, SINGLE
     Route: 058
     Dates: start: 20071128
  3. XOLAIR [Suspect]
     Dosage: 300 MG, SINGLE
     Route: 058
     Dates: start: 20071205

REACTIONS (2)
  - BRONCHOSPASM [None]
  - FATIGUE [None]
